FAERS Safety Report 12856646 (Version 1)
Quarter: 2016Q4

REPORT INFORMATION
  Report Type: Spontaneous
  Country: US (occurrence: US)
  Receive Date: 20161018
  Receipt Date: 20161018
  Transmission Date: 20170207
  Serious: Yes (Hospitalization, Disabling)
  Sender: FDA-Public Use
  Company Number: None

PATIENT
  Age: 61 Year
  Sex: Female
  Weight: 50.85 kg

DRUGS (10)
  1. CIPROFLOXACIN. [Suspect]
     Active Substance: CIPROFLOXACIN
     Indication: PYREXIA
     Dosage: ?          QUANTITY:DOSING _ M 9%?.IST ANY RE;?
     Route: 048
     Dates: start: 20160331, end: 20160405
  2. CIPROFLOXACIN. [Suspect]
     Active Substance: CIPROFLOXACIN
     Indication: CHILLS
     Dosage: ?          QUANTITY:DOSING _ M 9%?.IST ANY RE;?
     Route: 048
     Dates: start: 20160331, end: 20160405
  3. AMLODIPINE [Concomitant]
     Active Substance: AMLODIPINE BESYLATE
  4. VALSPARTAN [Concomitant]
  5. MAGNESIUM [Concomitant]
     Active Substance: MAGNESIUM
  6. GLUTATHIONE [Concomitant]
     Active Substance: GLUTATHIONE
  7. BENFOTIAME [Concomitant]
  8. VITAMIN D [Concomitant]
     Active Substance: CHOLECALCIFEROL
  9. CIPROFLOXACIN. [Suspect]
     Active Substance: CIPROFLOXACIN
     Indication: PAIN
     Dosage: ?          QUANTITY:DOSING _ M 9%?.IST ANY RE;?
     Route: 048
     Dates: start: 20160331, end: 20160405
  10. COQ10 [Concomitant]
     Active Substance: UBIDECARENONE

REACTIONS (10)
  - Muscle fatigue [None]
  - Neuropathy peripheral [None]
  - Arthralgia [None]
  - Fatigue [None]
  - Night sweats [None]
  - Pyrexia [None]
  - Decreased appetite [None]
  - Vomiting [None]
  - Pain [None]
  - Nausea [None]

NARRATIVE: CASE EVENT DATE: 20160901
